FAERS Safety Report 19779759 (Version 2)
Quarter: 2021Q3

REPORT INFORMATION
  Report Type: Spontaneous
  Country: IT (occurrence: IT)
  Receive Date: 20210902
  Receipt Date: 20210914
  Transmission Date: 20211014
  Serious: Yes (Hospitalization)
  Sender: FDA-Public Use
  Company Number: IT-PFIZER INC-202101107435

PATIENT
  Age: 50 Year
  Sex: Female
  Weight: 60 kg

DRUGS (10)
  1. TRASTUZUMAB. [Suspect]
     Active Substance: TRASTUZUMAB
     Dosage: UNK
     Route: 041
  2. PERTUZUMAB. [Concomitant]
     Active Substance: PERTUZUMAB
     Dosage: 840 MG
     Route: 042
     Dates: start: 20210409
  3. CARBOPLATIN. [Suspect]
     Active Substance: CARBOPLATIN
     Indication: BREAST CANCER
     Dosage: UNK
     Route: 042
     Dates: start: 20210409, end: 20210819
  4. PARACETAMOL AND IBUPROFEN [Concomitant]
     Indication: PAIN
     Dosage: UNK
     Dates: start: 20210809, end: 20210812
  5. PARACETAMOL/CODEINE [Concomitant]
     Active Substance: ACETAMINOPHEN\CODEINE PHOSPHATE
     Indication: PAIN
     Dates: start: 20210330, end: 20210809
  6. TRASTUZUMAB. [Suspect]
     Active Substance: TRASTUZUMAB
     Indication: BREAST CANCER
     Dosage: 8 MG/KG
     Route: 041
     Dates: start: 20210409
  7. ATEZOLIZUMAB. [Suspect]
     Active Substance: ATEZOLIZUMAB
     Indication: BREAST CANCER
     Dosage: 1200 MG, EVERY 3 WEEKS (MOST RECENT DOSE OF ATEZOLIZUMAB(1200 MG)  PRIOR TO SAE ONSET: 16/JUL/2021)
     Route: 041
     Dates: start: 20210409, end: 20210819
  8. PACLITAXEL. [Suspect]
     Active Substance: PACLITAXEL
     Indication: BREAST CANCER
     Dosage: 90 MG/M2, EVERY 3 WEEKS (MOST RECENT DOSE OF PACLITAXEL (130 MG) PRIOR TO SAE ONSET: 23JUL/2021))
     Route: 042
     Dates: start: 20210409, end: 20210819
  9. PERTUZUMAB. [Concomitant]
     Active Substance: PERTUZUMAB
     Indication: BREAST CANCER
     Dosage: UNK MG
     Route: 042
  10. PARACETAMOL [Concomitant]
     Active Substance: ACETAMINOPHEN
     Indication: PAIN
     Dates: start: 20210330, end: 20210809

REACTIONS (1)
  - Renal failure [Recovering/Resolving]

NARRATIVE: CASE EVENT DATE: 20210812
